FAERS Safety Report 6999854-4 (Version None)
Quarter: 2010Q3

REPORT INFORMATION
  Report Type: 
  Country: None (occurrence: None)
  Receive Date: 20100920
  Receipt Date: 20071001
  Transmission Date: 20110219
  Serious: No
  Sender: FDA-Public Use
  Company Number: US-ASTRAZENECA-2007UW16500

PATIENT
  Age: 29 Year
  Sex: Female
  Weight: 117 kg

DRUGS (16)
  1. SEROQUEL [Suspect]
     Indication: DEPRESSION
     Route: 048
     Dates: start: 20000610, end: 20041101
  2. SEROQUEL [Suspect]
     Route: 048
     Dates: start: 20000610, end: 20041101
  3. SEROQUEL [Suspect]
     Route: 048
     Dates: start: 20000610, end: 20041101
  4. SEROQUEL [Suspect]
     Dosage: 100MG-300MG
     Route: 048
     Dates: start: 20040610
  5. RISPERDAL [Concomitant]
     Indication: DEPRESSION
     Dates: start: 20020701, end: 20021001
  6. RISPERDAL [Concomitant]
     Dates: start: 20020701, end: 20021001
  7. RISPERDAL [Concomitant]
     Dates: start: 20020701, end: 20021001
  8. ZYPREXA [Concomitant]
  9. ADVAIR DISKUS 100/50 [Concomitant]
     Dosage: 500/50 ONE PUFF TWO TIMES A DAY
     Dates: start: 20020617
  10. TOPAMAX [Concomitant]
     Indication: MIGRAINE
     Dosage: 75MG-250MG
     Dates: start: 20020926
  11. CELEXA [Concomitant]
     Dosage: 20MG-40MG
     Dates: start: 20020926
  12. WELLBUTRIN [Concomitant]
     Dates: start: 20021114
  13. GLUCOPHAGE [Concomitant]
     Dosage: 1000MG-2000MG
     Dates: start: 20030306
  14. HYDROCHLOROTHIAZIDE [Concomitant]
     Indication: HYPERTENSION
     Dates: start: 20020617
  15. ZOMIG [Concomitant]
     Indication: MIGRAINE
     Dosage: 2.5MG-5.0MG
     Dates: start: 20040715
  16. RIBOFLAVIN TAB [Concomitant]
     Indication: HEADACHE
     Dates: start: 20040715

REACTIONS (4)
  - DIABETES MELLITUS [None]
  - DRUG INEFFECTIVE [None]
  - GLUCOSE TOLERANCE IMPAIRED [None]
  - TYPE 2 DIABETES MELLITUS [None]
